FAERS Safety Report 7922148-7 (Version None)
Quarter: 2011Q4

REPORT INFORMATION
  Report Type: 
  Country: None (occurrence: None)
  Receive Date: 20111117
  Receipt Date: 20110119
  Transmission Date: 20120403
  Serious: No
  Sender: FDA-Public Use
  Company Number: US-AMGEN INC.-KDL445062

PATIENT
  Age: 66 Year
  Sex: Female

DRUGS (3)
  1. ENBREL [Suspect]
     Indication: RHEUMATOID ARTHRITIS
     Dosage: 50 MG, QWK
     Route: 058
     Dates: start: 20100817
  2. METHOTREXATE [Concomitant]
     Dosage: 15 MG, QWK
     Route: 048
  3. ENBREL [Suspect]
     Dosage: 50 MG, QWK
     Route: 058
     Dates: start: 20100817

REACTIONS (3)
  - UPPER RESPIRATORY TRACT INFECTION [None]
  - INJECTION SITE PAIN [None]
  - PAIN IN EXTREMITY [None]
